FAERS Safety Report 7764172-3 (Version None)
Quarter: 2011Q3

REPORT INFORMATION
  Report Type: 
  Country: None (occurrence: None)
  Receive Date: 20110921
  Receipt Date: 20110915
  Transmission Date: 20111222
  Serious: Yes (Other)
  Sender: FDA-Public Use
  Company Number: US-ABBOTT-11P-163-0855418-00

PATIENT
  Age: 45 Year
  Sex: Male

DRUGS (1)
  1. HUMIRA [Suspect]
     Indication: CROHN'S DISEASE
     Dates: start: 20090101, end: 20110907

REACTIONS (7)
  - INTESTINAL RESECTION [None]
  - DYSPNOEA [None]
  - PYREXIA [None]
  - CLOSTRIDIAL INFECTION [None]
  - ABDOMINAL ADHESIONS [None]
  - DIARRHOEA [None]
  - PNEUMONIA [None]
